FAERS Safety Report 17049852 (Version 1)
Quarter: 2019Q4

REPORT INFORMATION
  Report Type: Report from Study
  Country: IT (occurrence: IT)
  Receive Date: 20191119
  Receipt Date: 20191119
  Transmission Date: 20200122
  Serious: Yes (Hospitalization)
  Sender: FDA-Public Use
  Company Number: IT-MYLANLABS-2019M1110106

PATIENT
  Age: 71 Year
  Sex: Male

DRUGS (5)
  1. METFORMIN [Concomitant]
     Active Substance: METFORMIN HYDROCHLORIDE
     Dosage: UNK
  2. CARDIOASPIRIN [Concomitant]
     Active Substance: ASPIRIN
     Dosage: UNK
  3. CARVEDILOLO MYLAN GENERICS 25 MG COMPRESSE RIVESTITE CON FILM [Suspect]
     Active Substance: CARVEDILOL
     Indication: HYPERTENSION
     Dosage: 31.25 MILLIGRAM, QD
     Route: 048
     Dates: start: 20170501, end: 20190612
  4. LASITONE [Suspect]
     Active Substance: FUROSEMIDE\SPIRONOLACTONE
     Indication: HYPERTENSION
     Dosage: 62 MILLIGRAM, QD
     Route: 048
     Dates: start: 20190301, end: 20190612
  5. RAMIPRIL MYLAN GENERICS 10 MG COMPRESSE [Suspect]
     Active Substance: RAMIPRIL
     Indication: HYPERTENSION
     Dosage: 10 MILLIGRAM, QD
     Route: 048
     Dates: start: 20140101, end: 20190612

REACTIONS (4)
  - Atrioventricular block [Recovering/Resolving]
  - Hyperkalaemia [Recovering/Resolving]
  - Bradycardia [Recovering/Resolving]
  - Hypotension [Recovering/Resolving]

NARRATIVE: CASE EVENT DATE: 20190612
